FAERS Safety Report 6114776-9 (Version None)
Quarter: 2009Q1

REPORT INFORMATION
  Report Type: 
  Country: None (occurrence: None)
  Receive Date: 20090313
  Receipt Date: 20090303
  Transmission Date: 20090719
  Serious: Yes (Other)
  Sender: FDA-Public Use
  Company Number: US-BAYER-200915427GPV

PATIENT
  Age: 85 Year
  Sex: Male

DRUGS (8)
  1. CIPROFLOXACIN [Suspect]
     Indication: URINARY TRACT INFECTION
     Route: 065
     Dates: start: 20070226
  2. CARBIDOPA [Concomitant]
     Indication: PARKINSON'S DISEASE
     Dosage: TOTAL DAILY DOSE: 125 MG
     Route: 065
     Dates: start: 20060201
  3. LEVODOPA [Concomitant]
     Indication: PARKINSON'S DISEASE
     Dosage: TOTAL DAILY DOSE: 500 MG
     Route: 065
     Dates: start: 20060201
  4. TAMSULOSIN HCL [Concomitant]
     Indication: BENIGN PROSTATIC HYPERPLASIA
     Route: 065
  5. FINASTERIDE [Concomitant]
     Indication: BENIGN PROSTATIC HYPERPLASIA
     Route: 065
  6. TRAVOPROST [Concomitant]
     Indication: GLAUCOMA
     Route: 065
  7. METIPRANOLOL [Concomitant]
     Indication: GLAUCOMA
     Route: 047
  8. MIRTAZAPINE [Concomitant]
     Indication: DEPRESSION
     Route: 065

REACTIONS (1)
  - MANIA [None]
